FAERS Safety Report 11151769 (Version 1)
Quarter: 2015Q2

REPORT INFORMATION
  Report Type: Report from Study
  Country: BR (occurrence: BR)
  Receive Date: 20150601
  Receipt Date: 20150601
  Transmission Date: 20150821
  Serious: Yes (Death)
  Sender: FDA-Public Use
  Company Number: BR-SA-2015SA072682

PATIENT
  Age: 83 Year
  Sex: Male

DRUGS (1)
  1. LANTUS [Suspect]
     Active Substance: INSULIN GLARGINE
     Indication: TYPE 2 DIABETES MELLITUS
     Route: 058
     Dates: start: 201205, end: 20150510

REACTIONS (2)
  - Death [Fatal]
  - Infection [Unknown]

NARRATIVE: CASE EVENT DATE: 20150520
